FAERS Safety Report 5975583-0 (Version None)
Quarter: 2008Q4

REPORT INFORMATION
  Report Type: 
  Country: None (occurrence: None)
  Receive Date: 20081128
  Receipt Date: 20081121
  Transmission Date: 20090506
  Serious: Yes (Life-Threatening, Hospitalization)
  Sender: FDA-Public Use
  Company Number: VISP-NO-0811S-0557

PATIENT
  Age: 53 Year
  Sex: Female

DRUGS (11)
  1. VISIPAQUE [Suspect]
     Indication: ACUTE CORONARY SYNDROME
     Dosage: 670 ML SINGLE DOSE, INTRAVASCULAR
     Dates: start: 20081117, end: 20081117
  2. VISIPAQUE [Suspect]
     Indication: CARDIOMYOPATHY
     Dosage: 670 ML SINGLE DOSE, INTRAVASCULAR
     Dates: start: 20081117, end: 20081117
  3. CLOPIDOGREL [Concomitant]
  4. ACETYLSALICYLIC ACID SRT [Concomitant]
  5. SIMVASTATIN [Concomitant]
  6. IVABRADINE [Concomitant]
  7. LANSOPRAZOL [Concomitant]
  8. TIOTROPIUM [Concomitant]
  9. TRIAZOLAM [Concomitant]
  10. LEVOTHYROXINE SODIUM [Concomitant]
  11. FENTANYL CITRATE [Concomitant]

REACTIONS (7)
  - ACUTE CORONARY SYNDROME [None]
  - CARDIOMYOPATHY [None]
  - HAEMOLYSIS [None]
  - HEPATIC FAILURE [None]
  - JAUNDICE [None]
  - PAIN [None]
  - RENAL FAILURE [None]
